FAERS Safety Report 22707781 (Version 2)
Quarter: 2023Q4

REPORT INFORMATION
  Report Type: Spontaneous
  Country: DE (occurrence: DE)
  Receive Date: 20230714
  Receipt Date: 20231005
  Transmission Date: 20240110
  Serious: Yes (Other)
  Sender: FDA-Public Use
  Company Number: DE-MLMSERVICE-20230711-4408284-1

PATIENT
  Age: 65 Year
  Sex: Male

DRUGS (7)
  1. DEXAMETHASONE [Suspect]
     Active Substance: DEXAMETHASONE
     Indication: Premedication
     Route: 065
  2. METFORMIN [Concomitant]
     Active Substance: METFORMIN HYDROCHLORIDE
     Indication: Type 2 diabetes mellitus
  3. IRINOTECAN [Concomitant]
     Active Substance: IRINOTECAN
     Indication: Colorectal cancer metastatic
     Dosage: 180 MG/M2 (FOLFIRI), FIRST LINE CHEMOTHERAPY
     Dates: start: 201611, end: 201704
  4. LEUCOVORIN [Concomitant]
     Active Substance: LEUCOVORIN\LEUCOVORIN CALCIUM
     Indication: Colorectal cancer metastatic
     Dosage: 400 MG/M2 (FOLFIRI), FIRST LINE CHEMOTHERAPY
     Dates: start: 201611, end: 201704
  5. FLUOROURACIL [Concomitant]
     Active Substance: FLUOROURACIL
     Indication: Colorectal cancer metastatic
     Dosage: 400 MG/M2 (FOLFIRI), FIRST LINE CHEMOTHERAPY
     Dates: start: 201611, end: 201704
  6. FLUOROURACIL [Concomitant]
     Active Substance: FLUOROURACIL
     Dosage: 2400 MG/M2 (FOLFIRI)
     Dates: start: 201611, end: 201704
  7. BEVACIZUMAB [Concomitant]
     Active Substance: BEVACIZUMAB
     Indication: Colorectal cancer metastatic
     Dates: start: 201611, end: 201704

REACTIONS (1)
  - Diabetes mellitus [Unknown]
